FAERS Safety Report 8260356-9 (Version None)
Quarter: 2012Q2

REPORT INFORMATION
  Report Type: 
  Country: None (occurrence: None)
  Receive Date: 20120404
  Receipt Date: 20120316
  Transmission Date: 20120825
  Serious: Yes (Death)
  Sender: FDA-Public Use
  Company Number: US-ROCHE-1052626

PATIENT
  Sex: Female

DRUGS (4)
  1. XELODA [Suspect]
     Indication: BREAST CANCER METASTATIC
     Dosage: FREQUENCY EVERY MORNING
     Route: 048
     Dates: start: 20120307, end: 20120316
  2. TYKERB [Concomitant]
     Indication: BREAST CANCER METASTATIC
     Route: 048
  3. IMODIUM [Concomitant]
     Indication: DIARRHOEA
     Route: 048
     Dates: start: 20120307
  4. MORPHINE SULFATE [Concomitant]
     Indication: PAIN
     Route: 048

REACTIONS (3)
  - DIARRHOEA [None]
  - DEATH [None]
  - STOMATITIS [None]
